FAERS Safety Report 13622739 (Version 4)
Quarter: 2017Q2

REPORT INFORMATION
  Report Type: Report from Study
  Country: US (occurrence: US)
  Receive Date: 20170607
  Receipt Date: 20170623
  Transmission Date: 20170830
  Serious: Yes (Hospitalization)
  Sender: FDA-Public Use
  Company Number: US-GILEAD-2017-0276554

PATIENT
  Age: 57 Year
  Sex: Female

DRUGS (4)
  1. AMBRISENTAN [Suspect]
     Active Substance: AMBRISENTAN
     Indication: PRODUCT USED FOR UNKNOWN INDICATION
     Dosage: 10 MG, QD
     Route: 065
  2. UPTRAVI [Suspect]
     Active Substance: SELEXIPAG
     Indication: PRODUCT USED FOR UNKNOWN INDICATION
     Dosage: 1600 UG, BID
     Route: 065
  3. WARFARIN [Concomitant]
     Active Substance: WARFARIN
  4. DILTIAZEM. [Concomitant]
     Active Substance: DILTIAZEM

REACTIONS (9)
  - Painful respiration [Unknown]
  - Cardiac disorder [Unknown]
  - Headache [Not Recovered/Not Resolved]
  - Diarrhoea [Unknown]
  - Dyspnoea [Unknown]
  - Headache [Recovered/Resolved]
  - Nausea [Unknown]
  - Pain in jaw [Unknown]
  - Myalgia [Unknown]
